FAERS Safety Report 4673991-1 (Version None)
Quarter: 2005Q2

REPORT INFORMATION
  Report Type: 
  Country: None (occurrence: None)
  Receive Date: 20050525
  Receipt Date: 20050510
  Transmission Date: 20051028
  Serious: Yes (Hospitalization)
  Sender: FDA-Public Use
  Company Number: 212915

PATIENT
  Sex: Male

DRUGS (4)
  1. MABTHERA              (RITUXIMAB) [Suspect]
     Indication: DIFFUSE LARGE B-CELL LYMPHOMA
     Dates: end: 20050128
  2. IFOSFAMIDE [Suspect]
     Indication: DIFFUSE LARGE B-CELL LYMPHOMA
  3. CARBOPLATIN [Suspect]
     Indication: DIFFUSE LARGE B-CELL LYMPHOMA
  4. ETOPOSIDE [Suspect]
     Indication: DIFFUSE LARGE B-CELL LYMPHOMA

REACTIONS (7)
  - DEAFNESS [None]
  - HAEMOGLOBIN DECREASED [None]
  - MIDDLE EAR EFFUSION [None]
  - OTOTOXICITY [None]
  - PNEUMONIA [None]
  - SENSORY DISTURBANCE [None]
  - WHITE BLOOD CELL COUNT INCREASED [None]
